FAERS Safety Report 4989945-1 (Version None)
Quarter: 2006Q2

REPORT INFORMATION
  Report Type: 
  Country: None (occurrence: None)
  Receive Date: 20060427
  Receipt Date: 20060412
  Transmission Date: 20061013
  Serious: Yes (Disabling, Other)
  Sender: FDA-Public Use
  Company Number: VNL_0118_2006

PATIENT
  Age: 58 Year
  Sex: Female

DRUGS (8)
  1. APO-GO [Suspect]
     Indication: PARKINSON'S DISEASE
     Dosage: DF INFUSION SC
     Route: 058
     Dates: start: 20051201, end: 20060101
  2. MIRAPEXIN [Concomitant]
  3. SYMMETREL [Concomitant]
  4. CO-BENLDOPA [Concomitant]
  5. SINEMET [Concomitant]
  6. CABASER [Concomitant]
  7. AZILECT [Concomitant]
  8. PRIADEL [Concomitant]

REACTIONS (8)
  - DRY SKIN [None]
  - ERYTHEMA [None]
  - FALL [None]
  - INFUSION SITE MASS [None]
  - INFUSION SITE RASH [None]
  - NODULE [None]
  - PRURITUS [None]
  - RASH [None]
